FAERS Safety Report 8608169-X (Version None)
Quarter: 2012Q3

REPORT INFORMATION
  Report Type: 
  Country: None (occurrence: None)
  Receive Date: 20120821
  Receipt Date: 20120814
  Transmission Date: 20120928
  Serious: No
  Sender: FDA-Public Use
  Company Number: US-ASTRAZENECA-2012SE57313

PATIENT
  Sex: Male

DRUGS (2)
  1. NEXIUM [Suspect]
     Route: 048
     Dates: end: 20120601
  2. OMEPRAZOLE [Suspect]
     Route: 048
     Dates: start: 20120601

REACTIONS (2)
  - INTENTIONAL DRUG MISUSE [None]
  - VOMITING [None]
